FAERS Safety Report 16151445 (Version 1)
Quarter: 2019Q2

REPORT INFORMATION
  Report Type: Spontaneous
  Country: FR (occurrence: FR)
  Receive Date: 20190403
  Receipt Date: 20190403
  Transmission Date: 20190711
  Serious: Yes (Hospitalization)
  Sender: FDA-Public Use
  Company Number: FR-TEVA-2019-FR-1031524

PATIENT
  Age: 65 Year
  Sex: Male
  Weight: 78.5 kg

DRUGS (18)
  1. PROPOFOL. [Suspect]
     Active Substance: PROPOFOL
     Indication: ANAESTHESIA
     Dosage: 150 MILLIGRAM DAILY;
     Route: 042
     Dates: start: 20181005, end: 20181005
  2. DROPERIDOL. [Suspect]
     Active Substance: DROPERIDOL
     Indication: NAUSEA
     Dosage: TOTAL DOSE
     Route: 042
     Dates: start: 20181005, end: 20181007
  3. ISOFUNDINE, SOLUTION POUR PERFUSION [Suspect]
     Active Substance: CALCIUM CHLORIDE\MAGNESIUM CHLORIDE\MALIC ACID\POTASSIUM CHLORIDE\SODIUM ACETATE\SODIUM CHLORIDE
     Indication: BLOOD VOLUME EXPANSION
     Dosage: 1 LITERS DAILY;
     Route: 042
     Dates: start: 20181005, end: 20181005
  4. EXACYL 0,5 G/5 ML I.V., SOLUTION INJECTABLE [Suspect]
     Active Substance: TRANEXAMIC ACID
     Indication: ANAESTHESIA
     Dosage: 1 GRAM DAILY;
     Route: 042
     Dates: start: 20181005, end: 20181005
  5. SUFENTANIL [Suspect]
     Active Substance: SUFENTANIL
     Indication: ANAESTHESIA
     Dosage: 90 MICROGRAM DAILY;
     Route: 042
     Dates: start: 20181005, end: 20181005
  6. DEXAMETHASONE. [Suspect]
     Active Substance: DEXAMETHASONE
     Indication: ANAESTHESIA
     Dosage: 8 MILLIGRAM DAILY;
     Route: 042
     Dates: start: 20181005, end: 20181005
  7. PARACETAMOL [Concomitant]
     Active Substance: ACETAMINOPHEN
     Indication: PAIN
     Route: 048
     Dates: start: 20181005, end: 201811
  8. KETAMINE [Suspect]
     Active Substance: KETAMINE
     Indication: ANAESTHESIA
     Dosage: 25 MILLIGRAM DAILY;
     Route: 042
     Dates: start: 20181005, end: 20181005
  9. TOPALGIC 50 MG, G?LULE [Suspect]
     Active Substance: TRAMADOL HYDROCHLORIDE
     Indication: PAIN
     Route: 048
     Dates: start: 20181005, end: 20181012
  10. LANSOPRAZOLE. [Suspect]
     Active Substance: LANSOPRAZOLE
     Indication: GASTRITIS
     Dosage: 15 MILLIGRAM DAILY;
     Route: 048
     Dates: start: 20181005, end: 20181012
  11. SPASFON LYOC 80 MG, LYOPHILISAT ORAL [Concomitant]
     Active Substance: PHLOROGLUCINOL
     Indication: PAIN
     Dosage: 480 MILLIGRAM DAILY;
     Route: 048
     Dates: start: 20181005, end: 201811
  12. OXYBUTYNINE [Concomitant]
     Active Substance: OXYBUTYNIN CHLORIDE
     Dosage: 5 MILLIGRAM DAILY;
     Route: 048
     Dates: start: 20181009, end: 201811
  13. TRACRIUM [Suspect]
     Active Substance: ATRACURIUM BESYLATE
     Indication: ANAESTHESIA
     Dosage: 75 MILLIGRAM DAILY;
     Route: 042
     Dates: start: 20181005, end: 20181005
  14. RIVOTRIL [Suspect]
     Active Substance: CLONAZEPAM
     Indication: PAIN
     Dosage: 15 GTT DAILY;
     Route: 048
     Dates: start: 20181009, end: 20181016
  15. LOVENOX [Concomitant]
     Active Substance: ENOXAPARIN SODIUM
     Indication: THROMBOSIS PROPHYLAXIS
     Dosage: 1 DOSAGE FORMS DAILY;
     Route: 058
     Dates: start: 20181005, end: 201811
  16. CEFAZOLINE [Suspect]
     Active Substance: CEFAZOLIN SODIUM
     Indication: INFECTION PROPHYLAXIS
     Dosage: 2 GRAM DAILY;
     Route: 042
     Dates: start: 20181005, end: 20181005
  17. MORPHINE [Suspect]
     Active Substance: MORPHINE
     Indication: PROCEDURAL PAIN
     Dosage: TOTAL DOSE
     Route: 042
     Dates: start: 20181005, end: 20181007
  18. ZOLPIDEM [Concomitant]
     Active Substance: ZOLPIDEM\ZOLPIDEM TARTRATE
     Indication: INSOMNIA
     Dosage: 5 MILLIGRAM DAILY;
     Route: 048
     Dates: start: 20181009, end: 20181017

REACTIONS (1)
  - Pancreatitis acute [Recovered/Resolved]

NARRATIVE: CASE EVENT DATE: 20181010
